FAERS Safety Report 7211786-5 (Version None)
Quarter: 2011Q1

REPORT INFORMATION
  Report Type: 
  Country: None (occurrence: None)
  Receive Date: 20110105
  Receipt Date: 20101223
  Transmission Date: 20110831
  Serious: Yes (Hospitalization)
  Sender: FDA-Public Use
  Company Number: US-BAYER-2010-007965

PATIENT
  Sex: Female

DRUGS (6)
  1. LEVOXYL [Concomitant]
     Dosage: UNK
  2. CIPRO [Suspect]
     Indication: URINARY TRACT INFECTION
  3. PLAVIX [Concomitant]
     Dosage: UNK
  4. FLECAINIDE [Concomitant]
     Dosage: UNK
  5. VICODIN [Concomitant]
     Dosage: UNK
  6. PROTONIX [Concomitant]
     Dosage: UNK

REACTIONS (1)
  - NEUROPATHY PERIPHERAL [None]
